FAERS Safety Report 8860756 (Version 1)
Quarter: 2012Q4

REPORT INFORMATION
  Report Type: 
  Country: US (occurrence: US)
  Receive Date: 20121026
  Receipt Date: 20121026
  Transmission Date: 20130627
  Serious: Yes (Other)
  Sender: FDA-Public Use
  Company Number: US-BRISTOL-MYERS SQUIBB COMPANY-17047044

PATIENT

DRUGS (1)
  1. LYSODREN [Suspect]
     Indication: ADRENAL CARCINOMA
     Route: 048

REACTIONS (1)
  - Dysphagia [Unknown]
